FAERS Safety Report 19006699 (Version 2)
Quarter: 2021Q1

REPORT INFORMATION
  Report Type: Spontaneous
  Country: JP (occurrence: JP)
  Receive Date: 20210315
  Receipt Date: 20210320
  Transmission Date: 20210420
  Serious: Yes (Other)
  Sender: FDA-Public Use
  Company Number: JP-SUN PHARMACEUTICAL INDUSTRIES LTD-2021RR-285393

PATIENT
  Sex: Male
  Weight: 13.7 kg

DRUGS (5)
  1. THEOPHYLLINE [Concomitant]
     Active Substance: THEOPHYLLINE ANHYDROUS
     Dosage: 2.7 MG/KG TWICE A DAY, TOTAL 5.4 MG/KG/DAY
     Route: 065
  2. E KEPPRA DRY SYRUPP 50% [Suspect]
     Active Substance: LEVETIRACETAM
     Dosage: 10 MG/KG TWICE A DAY
     Route: 065
  3. E KEPPRA DRY SYRUPP 50% [Suspect]
     Active Substance: LEVETIRACETAM
     Dosage: UNK
     Route: 065
  4. THEOPHYLLINE [Concomitant]
     Active Substance: THEOPHYLLINE ANHYDROUS
     Indication: BREATH HOLDING
     Dosage: 2 MG/KG TWICE A DAY, TOTAL 4 MG/KG/DAY
     Route: 065
  5. E KEPPRA DRY SYRUPP 50% [Suspect]
     Active Substance: LEVETIRACETAM
     Indication: BREATH HOLDING
     Dosage: UNK
     Route: 065

REACTIONS (2)
  - Disease recurrence [Unknown]
  - Drug ineffective [Unknown]
